FAERS Safety Report 17415210 (Version 10)
Quarter: 2022Q3

REPORT INFORMATION
  Report Type: Spontaneous
  Country: US (occurrence: US)
  Receive Date: 20200213
  Receipt Date: 20220915
  Transmission Date: 20221026
  Serious: Yes (Disabling, Other)
  Sender: FDA-Public Use
  Company Number: US-PFIZER INC-2018496563

PATIENT
  Age: 58 Year
  Sex: Female
  Weight: 68 kg

DRUGS (17)
  1. PRISTIQ EXTENDED-RELEASE [Suspect]
     Active Substance: DESVENLAFAXINE SUCCINATE
     Indication: Depression
     Dosage: 75 MG, UNK
     Dates: start: 201609
  2. PRISTIQ EXTENDED-RELEASE [Suspect]
     Active Substance: DESVENLAFAXINE SUCCINATE
     Indication: Pain
     Dosage: 0.5 DF, UNK (SPLITTING ONE OF THE 25MG OR ONE OF THE 50 MG PILLS)
     Dates: start: 201807, end: 2018
  3. PRISTIQ EXTENDED-RELEASE [Suspect]
     Active Substance: DESVENLAFAXINE SUCCINATE
     Dosage: 0.5 DF, (CUTTING THE 25 MG IN HALF; DID THAT FOR A MONTH)
     Dates: start: 201808, end: 201809
  4. PRISTIQ EXTENDED-RELEASE [Suspect]
     Active Substance: DESVENLAFAXINE SUCCINATE
     Dosage: 100 MG, 1X/DAY (EVERY MORNING)
  5. PRISTIQ EXTENDED-RELEASE [Suspect]
     Active Substance: DESVENLAFAXINE SUCCINATE
     Dosage: 75 MG, 1X/DAY, (25MG AND ONE 50MG PILL EACH DAY)
  6. PRISTIQ EXTENDED-RELEASE [Suspect]
     Active Substance: DESVENLAFAXINE SUCCINATE
     Dosage: 50 MG
     Dates: start: 201609
  7. PRISTIQ EXTENDED-RELEASE [Suspect]
     Active Substance: DESVENLAFAXINE SUCCINATE
     Dosage: UNK
     Dates: start: 201609
  8. TRAMADOL [Concomitant]
     Active Substance: TRAMADOL
     Indication: Pain
     Dosage: 50 MG(50MG TAKES BETWEEN THREE AND FOUR A DAY, TABLET BY MOUTH A DAY)
     Route: 048
     Dates: start: 201712
  9. ORPHENADRINE CITRATE [Concomitant]
     Active Substance: ORPHENADRINE CITRATE
     Indication: Facial pain
     Dosage: 100 MG, 3X/DAY
     Route: 048
     Dates: start: 201712
  10. ORPHENADRINE CITRATE [Concomitant]
     Active Substance: ORPHENADRINE CITRATE
     Indication: Temporomandibular joint syndrome
  11. DIAZEPAM [Concomitant]
     Active Substance: DIAZEPAM
     Indication: Vertigo
     Dosage: UNK, 3X/DAY(2MG, ONE QUARTER TABLET TO 1 TABLET, THREE TIMES A DAY BY MOUTH )
     Route: 048
     Dates: start: 20210125
  12. CREON [Concomitant]
     Active Substance: PANCRELIPASE AMYLASE\PANCRELIPASE LIPASE\PANCRELIPASE PROTEASE
     Indication: Pancreatic failure
     Dosage: UNK(CAPSULE THAT HAS 36000 USP LIPASE, 114000 USP PROTEASE, AND 180000 AMYLASE)
     Dates: start: 2013
  13. RAMELTEON [Concomitant]
     Active Substance: RAMELTEON
     Indication: Insomnia
     Dosage: 8 MG, 1X/DAY(TABLET, 8 MG AT BEDTIME BY MOUTH)
     Route: 048
     Dates: start: 2019
  14. OXYGEN [Concomitant]
     Active Substance: OXYGEN
     Indication: Central sleep apnoea syndrome
     Dosage: UNK(AT NIGHT, NASAL CANULA, 2L )
  15. FERROUS FUMARATE [Concomitant]
     Active Substance: FERROUS FUMARATE
     Dosage: UNK
  16. MAGNESIUM [Concomitant]
     Active Substance: MAGNESIUM
     Dosage: UNK
  17. VITAMIN B [Concomitant]
     Active Substance: VITAMIN B
     Dosage: UNK

REACTIONS (15)
  - Haemorrhage [Unknown]
  - Polymyalgia rheumatica [Unknown]
  - Gastrointestinal haemorrhage [Unknown]
  - Cognitive disorder [Unknown]
  - Bradycardia [Unknown]
  - Pain [Unknown]
  - Drug ineffective [Unknown]
  - Intentional product misuse [Unknown]
  - Neurological symptom [Unknown]
  - Memory impairment [Unknown]
  - Ovarian disorder [Unknown]
  - Illness [Unknown]
  - Giant cell arteritis [Unknown]
  - Ulcer [Unknown]
  - Anaemia [Unknown]

NARRATIVE: CASE EVENT DATE: 20180101
